FAERS Safety Report 9313961 (Version 1)
Quarter: 2013Q2

REPORT INFORMATION
  Report Type: Spontaneous
  Country: US (occurrence: US)
  Receive Date: 20130529
  Receipt Date: 20130529
  Transmission Date: 20140414
  Serious: Yes (Other)
  Sender: FDA-Public Use
  Company Number: US-AMGEN-USASP2013037471

PATIENT
  Sex: Male

DRUGS (1)
  1. SENSIPAR [Suspect]
     Indication: PRODUCT USED FOR UNKNOWN INDICATION
     Dosage: 90 MG, BID

REACTIONS (6)
  - Subdural haematoma [Unknown]
  - Renal transplant [Unknown]
  - Fall [Unknown]
  - Dehydration [Unknown]
  - Blood calcium increased [Unknown]
  - Blood parathyroid hormone increased [Unknown]
